FAERS Safety Report 14156102 (Version 1)
Quarter: 2017Q4

REPORT INFORMATION
  Report Type: Report from Study
  Country: US (occurrence: US)
  Receive Date: 20171103
  Receipt Date: 20171103
  Transmission Date: 20180321
  Serious: Yes (Hospitalization, Other)
  Sender: FDA-Public Use
  Company Number: US-BRISTOL-MYERS SQUIBB COMPANY-BMS-2016-111865

PATIENT
  Age: 48 Year
  Sex: Female

DRUGS (1)
  1. DASATINIB. [Suspect]
     Active Substance: DASATINIB
     Indication: MYELOID LEUKAEMIA
     Dosage: 1 TAB, DAILY
     Route: 048
     Dates: start: 201612

REACTIONS (10)
  - Gait inability [Unknown]
  - Nausea [Unknown]
  - Adverse event [Unknown]
  - Chills [Unknown]
  - Hernia [Unknown]
  - Pain [Unknown]
  - Cholecystitis infective [Unknown]
  - Vomiting [Unknown]
  - Abdominal pain [Unknown]
  - Urinary tract infection [Unknown]

NARRATIVE: CASE EVENT DATE: 20171001
